FAERS Safety Report 4303876-1 (Version None)
Quarter: 2004Q1

REPORT INFORMATION
  Report Type: 
  Country: None (occurrence: None)
  Receive Date: 20040225
  Receipt Date: 20040213
  Transmission Date: 20041129
  Serious: Yes (Other)
  Sender: FDA-Public Use
  Company Number: JP-GLAXOSMITHKLINE-B0323496A

PATIENT
  Age: 36 Year
  Sex: Female

DRUGS (7)
  1. PAXIL [Suspect]
     Indication: DEPRESSION
     Dosage: 20MG PER DAY
     Route: 048
     Dates: start: 20030506, end: 20030529
  2. PAXIL [Suspect]
     Dosage: 20MG TWICE PER DAY
     Route: 048
     Dates: start: 20030530, end: 20040124
  3. DIAZEPAM [Concomitant]
     Route: 048
     Dates: start: 20030530, end: 20030926
  4. RESLIN [Concomitant]
     Route: 048
     Dates: start: 20030530, end: 20030926
  5. ROHYPNOL [Concomitant]
     Route: 065
     Dates: start: 20030530, end: 20030926
  6. ZYPREXA [Concomitant]
     Route: 048
     Dates: start: 20030530, end: 20030926
  7. SOLANAX [Concomitant]
     Route: 048
     Dates: start: 20030530, end: 20030627

REACTIONS (2)
  - MUSCLE TIGHTNESS [None]
  - SEROTONIN SYNDROME [None]
